FAERS Safety Report 13324285 (Version 1)
Quarter: 2017Q1

REPORT INFORMATION
  Report Type: Spontaneous
  Country: US (occurrence: US)
  Receive Date: 20170310
  Receipt Date: 20170310
  Transmission Date: 20170428
  Serious: No
  Sender: FDA-Public Use
  Company Number: US-009507513-1702USA005649

PATIENT
  Sex: Female

DRUGS (1)
  1. INTRON A [Suspect]
     Active Substance: INTERFERON ALFA-2B
     Indication: MALIGNANT MELANOMA STAGE III
     Dosage: ROUTE REPORTED AS INJECTION

REACTIONS (3)
  - Colour blindness [Not Recovered/Not Resolved]
  - Adverse event [Unknown]
  - Product use issue [Unknown]
